FAERS Safety Report 25252407 (Version 1)
Quarter: 2025Q2

REPORT INFORMATION
  Report Type: Spontaneous
  Country: CN (occurrence: CN)
  Receive Date: 20250429
  Receipt Date: 20250429
  Transmission Date: 20250716
  Serious: Yes (Other)
  Sender: PURDUE
  Company Number: CN-NAPPMUNDI-GBR-2025-0125224

PATIENT
  Age: 69 Year
  Sex: Female
  Weight: 70 kg

DRUGS (3)
  1. OXYCONTIN [Suspect]
     Active Substance: OXYCODONE HYDROCHLORIDE
     Indication: Pain in extremity
     Dosage: 10 MILLIGRAM, Q12H
     Route: 048
     Dates: start: 20240802, end: 20240805
  2. FLURBIPROFEN AXETIL [Suspect]
     Active Substance: FLURBIPROFEN AXETIL
     Indication: Pain in extremity
     Dosage: 50 MILLIGRAM, DAILY
     Route: 042
     Dates: start: 20240803, end: 20240803
  3. SODIUM CHLORIDE [Suspect]
     Active Substance: SODIUM CHLORIDE
     Indication: Pain in extremity
     Route: 042
     Dates: start: 20240803, end: 20240803

REACTIONS (3)
  - Rash erythematous [Recovering/Resolving]
  - Pruritus [Recovered/Resolved]
  - Arthralgia [Unknown]

NARRATIVE: CASE EVENT DATE: 20240803
